FAERS Safety Report 16036612 (Version 3)
Quarter: 2019Q2

REPORT INFORMATION
  Report Type: Spontaneous
  Country: JP (occurrence: JP)
  Receive Date: 20190305
  Receipt Date: 20190611
  Transmission Date: 20190711
  Serious: Yes (Death, Hospitalization)
  Sender: FDA-Public Use
  Company Number: JP-UCBSA-2019008401

PATIENT
  Age: 82 Year
  Sex: Male

DRUGS (5)
  1. E KEPPRA [Suspect]
     Active Substance: LEVETIRACETAM
     Indication: EPILEPSY
     Dosage: 1000MG DAILY DOSE
     Route: 048
     Dates: start: 20190108, end: 20190120
  2. DONEPEZIL HYDROCHLORIDE. [Suspect]
     Active Substance: DONEPEZIL HYDROCHLORIDE
     Dosage: 5 MG DAILY
     Route: 048
     Dates: start: 20190201, end: 20190201
  3. DONEPEZIL HYDROCHLORIDE. [Suspect]
     Active Substance: DONEPEZIL HYDROCHLORIDE
     Indication: PRODUCT USED FOR UNKNOWN INDICATION
     Dosage: 3MG DAILY DOSE
     Route: 048
     Dates: start: 20190125, end: 20190131
  4. PIPERACILLIN NA [Concomitant]
     Indication: PRODUCT USED FOR UNKNOWN INDICATION
     Dosage: 6 G DAILY
     Route: 042
     Dates: start: 20190129, end: 20190207
  5. E KEPPRA [Suspect]
     Active Substance: LEVETIRACETAM
     Indication: FOCAL DYSCOGNITIVE SEIZURES
     Dosage: 2000MG DAILY DOSE
     Route: 048
     Dates: start: 20190121, end: 20190201

REACTIONS (5)
  - Death [Fatal]
  - Bacterial infection [Unknown]
  - Altered state of consciousness [Recovering/Resolving]
  - Acute kidney injury [Unknown]
  - Somnolence [Recovering/Resolving]

NARRATIVE: CASE EVENT DATE: 20190122
